FAERS Safety Report 10730051 (Version 6)
Quarter: 2015Q2

REPORT INFORMATION
  Report Type: Spontaneous
  Country: US (occurrence: US)
  Receive Date: 20150122
  Receipt Date: 20150618
  Transmission Date: 20150821
  Serious: Yes (Hospitalization, Other)
  Sender: FDA-Public Use
  Company Number: US-009507513-1105USA03979

PATIENT
  Sex: Female
  Weight: 48.73 kg

DRUGS (4)
  1. FOSAMAX [Suspect]
     Active Substance: ALENDRONATE SODIUM
     Dosage: 70 MG, UNK
     Route: 048
     Dates: start: 20090611, end: 20110725
  2. ALENDRONATE SODIUM. [Suspect]
     Active Substance: ALENDRONATE SODIUM
     Indication: OSTEOPOROSIS
     Dosage: 70 MG, UNK
     Route: 048
     Dates: start: 20080223, end: 20090313
  3. FOSAMAX [Suspect]
     Active Substance: ALENDRONATE SODIUM
     Indication: OSTEOPOROSIS
     Dosage: 70 MG, UNK
     Route: 048
     Dates: start: 20040906, end: 20071130
  4. FOSAMAX [Suspect]
     Active Substance: ALENDRONATE SODIUM
     Indication: OSTEOPOROSIS
     Dosage: 70 MG, UNK
     Route: 048

REACTIONS (27)
  - Osteopenia [Unknown]
  - Transfusion [Unknown]
  - Chest pain [Unknown]
  - Fracture delayed union [Unknown]
  - Chondrocalcinosis [Unknown]
  - Goitre [Unknown]
  - Nasal congestion [Unknown]
  - Chronic kidney disease [Not Recovered/Not Resolved]
  - Urinary tract infection [Unknown]
  - Osteoarthritis [Unknown]
  - Intramedullary rod insertion [Unknown]
  - Appendicectomy [Unknown]
  - Hypokalaemia [Unknown]
  - Ear discomfort [Unknown]
  - Hyperglycaemia [Unknown]
  - Anaemia postoperative [Unknown]
  - Renal transplant [Unknown]
  - Osteoporosis [Unknown]
  - Femur fracture [Recovered/Resolved]
  - Intramedullary rod insertion [Unknown]
  - Essential hypertension [Unknown]
  - Femur fracture [Unknown]
  - Syncope [Unknown]
  - Venous operation [Unknown]
  - Dizziness [Unknown]
  - Renal failure [Unknown]
  - Pain in jaw [Unknown]

NARRATIVE: CASE EVENT DATE: 2004
